FAERS Safety Report 20237455 (Version 1)
Quarter: 2021Q4

REPORT INFORMATION
  Report Type: Spontaneous
  Country: US (occurrence: None)
  Receive Date: 20211227
  Receipt Date: 20211227
  Transmission Date: 20220303
  Serious: Yes (Other)
  Sender: FDA-Public Use
  Company Number: None

PATIENT
  Age: 64 Year
  Sex: Male
  Weight: 75.6 kg

DRUGS (2)
  1. ZINC OXIDE [Suspect]
     Active Substance: ZINC OXIDE
     Indication: Rash
     Dosage: OTHER QUANTITY : 1 APPLICATION;?FREQUENCY : TWICE A DAY;?
     Route: 061
  2. ANUSOL NOS [Suspect]
     Active Substance: BALSAM PERU\BENZYL BENZOATE\BISMUTH HYDROXIDE\BISMUTH SUBGALLATE\HYDROCORTISONE ACETATE\ZINC OXIDE

REACTIONS (5)
  - Application site haemorrhage [None]
  - Skin fissures [None]
  - Skin exfoliation [None]
  - Scrotal haematoma [None]
  - Scar [None]

NARRATIVE: CASE EVENT DATE: 20211213
